FAERS Safety Report 8537396-5 (Version None)
Quarter: 2012Q3

REPORT INFORMATION
  Report Type: 
  Country: None (occurrence: None)
  Receive Date: 20120725
  Receipt Date: 20120720
  Transmission Date: 20120928
  Serious: Yes (Death, Hospitalization, Other)
  Sender: FDA-Public Use
  Company Number: US-009507513-2011SP006211

PATIENT

DRUGS (5)
  1. CARTIA XT [Concomitant]
     Indication: ATRIAL FIBRILLATION
  2. NUVARING [Suspect]
     Indication: MENSTRUAL CYCLE MANAGEMENT
  3. CARDIZEM CD [Concomitant]
     Indication: ATRIAL FIBRILLATION
     Dosage: 120 MG, QD
     Route: 048
  4. ASPIRIN [Concomitant]
     Indication: ATRIAL FIBRILLATION
     Dosage: 81 MG, QD
     Route: 048
  5. NUVARING [Suspect]
     Indication: CONTRACEPTION
     Dosage: 1 DF, QM
     Route: 067
     Dates: start: 20081001, end: 20090201

REACTIONS (10)
  - DYSMENORRHOEA [None]
  - HEADACHE [None]
  - FACIAL BONES FRACTURE [None]
  - HYPERCOAGULATION [None]
  - PULMONARY EMBOLISM [None]
  - MITRAL VALVE INCOMPETENCE [None]
  - SLEEP APNOEA SYNDROME [None]
  - ASTHMA [None]
  - PAIN [None]
  - INSOMNIA [None]
